FAERS Safety Report 7503826-0 (Version None)
Quarter: 2011Q2

REPORT INFORMATION
  Report Type: 
  Country: None (occurrence: None)
  Receive Date: 20110525
  Receipt Date: 20110513
  Transmission Date: 20111010
  Serious: Yes (Hospitalization)
  Sender: FDA-Public Use
  Company Number: DE-BRISTOL-MYERS SQUIBB COMPANY-14658306

PATIENT
  Age: 45 Year
  Sex: Male
  Weight: 82 kg

DRUGS (16)
  1. CORTICOSTEROID [Concomitant]
     Indication: PROPHYLAXIS
     Dates: start: 20090525, end: 20090528
  2. IBUPROFEN [Concomitant]
     Indication: ANALGESIC THERAPY
     Dates: start: 20090409
  3. PANTOPRAZOLE [Concomitant]
     Indication: GASTRITIS PROPHYLAXIS
     Dates: start: 20090408
  4. METOCLOPRAMIDE [Concomitant]
     Indication: GASTRITIS PROPHYLAXIS
     Dates: start: 20090507
  5. CISPLATIN [Suspect]
     Indication: NON-SMALL CELL LUNG CANCER STAGE IV
     Dosage: ON DAY 1 EVERY 21 DAYS DURATION:24D STARTED-04MAY09 RECENT INFUSION-27MAY09
     Route: 042
     Dates: start: 20090504
  6. FOLIC ACID [Concomitant]
     Indication: PROPHYLAXIS
     Dates: start: 20090418, end: 20090529
  7. NOVAMINSULFON [Concomitant]
     Indication: ANALGESIC THERAPY
     Dates: start: 20090418
  8. VITAMIN B-12 [Concomitant]
     Indication: PROPHYLAXIS
     Dates: start: 20090419, end: 20090512
  9. OXYGESIC [Concomitant]
     Indication: CHEST PAIN
     Dates: start: 20090418
  10. MOVIPREP [Concomitant]
     Indication: GASTRITIS PROPHYLAXIS
     Dates: start: 20090429
  11. CETUXIMAB [Suspect]
     Indication: NON-SMALL CELL LUNG CANCER STAGE IV
     Dosage: RECENT INFUSION ON 27MAY2009.ACTUAL DOSE(40ML)DURATION:24D.ON UNSPEIFIED DATE DOSE REDUCED TO HALF
     Route: 042
     Dates: start: 20090504
  12. ALIMTA [Suspect]
     Indication: NON-SMALL CELL LUNG CANCER STAGE IV
     Dosage: VIAL;ON DAY 1 EVERY 21 DAYS LAST DOSE:18MAY2009
     Route: 042
     Dates: start: 20090504
  13. OXYGESIC [Concomitant]
     Indication: ANALGESIC THERAPY
     Dates: start: 20090418
  14. IBUPROFEN [Concomitant]
     Indication: CHEST PAIN
     Dates: start: 20090409
  15. ANTIHISTAMINE NOS [Concomitant]
     Indication: PROPHYLAXIS
     Dates: start: 20090527, end: 20090527
  16. NOVAMINSULFON [Concomitant]
     Indication: CHEST PAIN
     Dates: start: 20090418

REACTIONS (3)
  - TUMOUR PAIN [None]
  - OBSTRUCTION [None]
  - CYTOKINE RELEASE SYNDROME [None]
